FAERS Safety Report 6636769-5 (Version None)
Quarter: 2010Q1

REPORT INFORMATION
  Report Type: 
  Country: None (occurrence: None)
  Receive Date: 20100316
  Receipt Date: 20100304
  Transmission Date: 20100710
  Serious: No
  Sender: FDA-Public Use
  Company Number: US-B.I. PHARMACEUTICALS,INC./RIDGEFIELD-2010-BP-02665BP

PATIENT
  Sex: Male

DRUGS (4)
  1. FLOMAX [Suspect]
  2. ATENOLOL [Concomitant]
  3. LISINOPRIL [Concomitant]
  4. AMIODARONE HCL [Concomitant]

REACTIONS (1)
  - AMPHETAMINES POSITIVE [None]
